FAERS Safety Report 12537452 (Version 1)
Quarter: 2016Q3

REPORT INFORMATION
  Report Type: Spontaneous
  Country: FR (occurrence: FR)
  Receive Date: 20160707
  Receipt Date: 20160707
  Transmission Date: 20161109
  Serious: Yes (Hospitalization)
  Sender: FDA-Public Use
  Company Number: FR-TEVA-673127ISR

PATIENT
  Age: 27 Year
  Sex: Male

DRUGS (24)
  1. DOXORUBICINE TEVA [Suspect]
     Active Substance: DOXORUBICIN
     Dosage: 150 MILLIGRAM DAILY; SIXTH COURSE
     Route: 042
     Dates: start: 20160606, end: 20160606
  2. IFOSFAMIDE EG [Suspect]
     Active Substance: IFOSFAMIDE
     Dosage: 10000 MILLIGRAM DAILY; FIFTH COURSE
     Route: 042
     Dates: start: 20160517, end: 20160517
  3. TRUVADA [Concomitant]
     Active Substance: EMTRICITABINE\TENOFOVIR DISOPROXIL FUMARATE
     Indication: ACQUIRED IMMUNODEFICIENCY SYNDROME
     Dosage: LONG-STANDING TREATMENT
     Route: 048
  4. LYRICA [Concomitant]
     Active Substance: PREGABALIN
     Indication: PAIN
     Dosage: 400 MILLIGRAM DAILY; LONG-STANDING TREATMENT
     Route: 048
     Dates: start: 201601
  5. NORVIR [Concomitant]
     Active Substance: RITONAVIR
     Dosage: LONG-STANDING TREATMENT
  6. DOXORUBICINE TEVA [Suspect]
     Active Substance: DOXORUBICIN
     Dosage: 150 MILLIGRAM DAILY; THIRD COURSE
     Route: 042
     Dates: start: 20160404, end: 20160404
  7. DOXORUBICINE TEVA [Suspect]
     Active Substance: DOXORUBICIN
     Dosage: 150 MILLIGRAM DAILY; FIFTH COURSE
     Route: 042
     Dates: start: 20160517, end: 20160517
  8. EMEND [Concomitant]
     Active Substance: APREPITANT
     Indication: PROPHYLAXIS OF NAUSEA AND VOMITING
     Dosage: 80 MILLIGRAM DAILY;
     Route: 048
     Dates: start: 20160222
  9. ISENTRESS 400 MG [Concomitant]
     Indication: ACQUIRED IMMUNODEFICIENCY SYNDROME
     Dosage: LONG-STANDING TREATMENT
     Route: 048
  10. IFOSFAMIDE EG [Suspect]
     Active Substance: IFOSFAMIDE
     Dosage: 10000 MILLIGRAM DAILY; SIXTH COURSE
     Route: 042
     Dates: start: 20160606, end: 20160606
  11. PREZISTA [Concomitant]
     Active Substance: DARUNAVIR ETHANOLATE
     Dosage: LONG-STANDING TREATMENT
  12. IFOSFAMIDE EG [Suspect]
     Active Substance: IFOSFAMIDE
     Dosage: 10000 MILLIGRAM DAILY; FOURTH COURSE
     Route: 042
     Dates: start: 20160425, end: 20160425
  13. METHYLPREDNISOLONE MYLAN 20 MG [Suspect]
     Active Substance: METHYLPREDNISOLONE
     Indication: PROPHYLAXIS OF NAUSEA AND VOMITING
     Dosage: 80 MILLIGRAM DAILY; 1ST COURSE
     Route: 042
     Dates: start: 20160222
  14. DOXORUBICINE TEVA [Suspect]
     Active Substance: DOXORUBICIN
     Indication: SARCOMA
     Dosage: 150 MILLIGRAM DAILY; FIRST COURSE
     Route: 042
     Dates: start: 20160222, end: 20160222
  15. IFOSFAMIDE EG [Suspect]
     Active Substance: IFOSFAMIDE
     Indication: SARCOMA
     Dosage: 10000 MILLIGRAM DAILY; FIRST COURSE
     Route: 042
     Dates: start: 20160222, end: 20160222
  16. MESNA EG [Suspect]
     Active Substance: MESNA
     Indication: PROPHYLAXIS
     Route: 042
  17. IFOSFAMIDE EG [Suspect]
     Active Substance: IFOSFAMIDE
     Dosage: 10000 MILLIGRAM DAILY; SECOND COURSE
     Route: 042
     Dates: start: 20160314, end: 20160314
  18. IFOSFAMIDE EG [Suspect]
     Active Substance: IFOSFAMIDE
     Dosage: 10000 MILLIGRAM DAILY; THIRD COURSE
     Route: 042
     Dates: start: 20160404, end: 20160404
  19. ZOPHREN 2 MG/ML [Suspect]
     Active Substance: ONDANSETRON
     Indication: PROPHYLAXIS OF NAUSEA AND VOMITING
     Dosage: 8 MILLIGRAM DAILY; FIRST COURSE
     Route: 042
     Dates: start: 20160222
  20. BACTRIM [Concomitant]
     Active Substance: SULFAMETHOXAZOLE\TRIMETHOPRIM
     Indication: PROPHYLAXIS
     Route: 048
     Dates: start: 20160225
  21. DOXORUBICINE TEVA [Suspect]
     Active Substance: DOXORUBICIN
     Dosage: 150 MILLIGRAM DAILY; SECOND COURSE
     Route: 042
     Dates: start: 20160314, end: 20160314
  22. DOXORUBICINE TEVA [Suspect]
     Active Substance: DOXORUBICIN
     Dosage: 150 MILLIGRAM DAILY; FOURTH COURSE
     Route: 042
     Dates: start: 20160425, end: 20160425
  23. ISENTRESS 400 MG [Concomitant]
     Dosage: 2 DOSAGE FORMS DAILY; LONG-STANDING TREATMENT
     Route: 048
     Dates: start: 20160225
  24. TRUVADA [Concomitant]
     Active Substance: EMTRICITABINE\TENOFOVIR DISOPROXIL FUMARATE
     Dosage: 200 MILLIGRAM DAILY; LONG-STANDING TREATMENT
     Route: 048

REACTIONS (3)
  - Thrombocytopenia [None]
  - Neutropenia [None]
  - Somnolence [Recovered/Resolved]

NARRATIVE: CASE EVENT DATE: 20160606
